FAERS Safety Report 15685764 (Version 1)
Quarter: 2018Q4

REPORT INFORMATION
  Report Type: Spontaneous
  Country: CA (occurrence: CA)
  Receive Date: 20181204
  Receipt Date: 20181204
  Transmission Date: 20190205
  Serious: Yes (Disabling)
  Sender: FDA-Public Use
  Company Number: CA-SA-2018SA324246

PATIENT
  Age: 54 Year
  Sex: Female
  Weight: 67 kg

DRUGS (4)
  1. VITAMINS NOS [Suspect]
     Active Substance: VITAMINS
  2. CLARITIN [CLARITHROMYCIN] [Concomitant]
     Active Substance: CLARITHROMYCIN
  3. NASACORT AQ [Suspect]
     Active Substance: TRIAMCINOLONE ACETONIDE
     Indication: HYPERSENSITIVITY
     Dosage: 2 U, QD
     Route: 045
  4. IBUPROFEN. [Concomitant]
     Active Substance: IBUPROFEN

REACTIONS (1)
  - Anosmia [Recovering/Resolving]
